FAERS Safety Report 14466295 (Version 1)
Quarter: 2018Q1

REPORT INFORMATION
  Report Type: Spontaneous
  Country: SK (occurrence: SK)
  Receive Date: 20180131
  Receipt Date: 20180131
  Transmission Date: 20180509
  Serious: Yes (Death, Hospitalization, Other)
  Sender: FDA-Public Use
  Company Number: SK-ACCORD-063071

PATIENT
  Age: 56 Year
  Sex: Male

DRUGS (3)
  1. FOLINIC ACID [Suspect]
     Active Substance: LEUCOVORIN
     Indication: RECTAL CANCER RECURRENT
     Dosage: DOSE REDUCED, SUBSEQUENTLY WITHDRAWN.
     Dates: start: 20170410, end: 201709
  2. FLUOROURACIL. [Suspect]
     Active Substance: FLUOROURACIL
     Indication: RECTAL CANCER RECURRENT
     Dosage: DOSE REDUCED AND SUBSEQUENTLY WITHDRAWN.
     Dates: start: 20170410, end: 201709
  3. OXALIPLATIN. [Suspect]
     Active Substance: OXALIPLATIN
     Indication: RECTAL CANCER RECURRENT
     Dosage: DOSE REDUCED SUBSEQUENTLY WITHDRAWN.
     Dates: start: 20170410, end: 201709

REACTIONS (7)
  - Cystitis [Not Recovered/Not Resolved]
  - Oral herpes [Not Recovered/Not Resolved]
  - Enterovesical fistula [Not Recovered/Not Resolved]
  - Postoperative wound infection [Unknown]
  - Abscess drainage [Not Recovered/Not Resolved]
  - Respiratory tract infection [Unknown]
  - Device related infection [Unknown]

NARRATIVE: CASE EVENT DATE: 20170517
